FAERS Safety Report 9816447 (Version 2)
Quarter: 2014Q1

REPORT INFORMATION
  Report Type: Report from Study
  Country: CN (occurrence: CN)
  Receive Date: 20140114
  Receipt Date: 20140114
  Transmission Date: 20141002
  Serious: Yes (Hospitalization)
  Sender: FDA-Public Use
  Company Number: CN-B.I. PHARMACEUTICALS,INC./RIDGEFIELD-2012-CS-00230CS

PATIENT
  Age: 73 Year
  Sex: Female
  Weight: 56 kg

DRUGS (5)
  1. BIBW 2992 [Suspect]
     Indication: BREAST CANCER
     Dosage: 40 MG
     Route: 048
     Dates: start: 20110711, end: 20110725
  2. BIBW 2992 [Suspect]
     Dosage: 30 MG
     Route: 048
     Dates: start: 20110801, end: 20111208
  3. BIBW 2992 [Suspect]
     Dosage: 20 MG
     Route: 048
     Dates: start: 20111222, end: 20120307
  4. PACLITAXEL [Suspect]
     Indication: BREAST CANCER
     Dosage: 128 MG
     Route: 042
     Dates: start: 20111201, end: 20120223
  5. GASCON [Concomitant]
     Indication: ABDOMINAL DISTENSION
     Dosage: 120 MG
     Route: 048
     Dates: start: 20120216, end: 20120223

REACTIONS (4)
  - Decreased appetite [Recovered/Resolved]
  - Nausea [Recovered/Resolved]
  - Vomiting [Recovered/Resolved]
  - Diarrhoea [Recovered/Resolved]
